FAERS Safety Report 13357776 (Version 1)
Quarter: 2017Q1

REPORT INFORMATION
  Report Type: Report from Study
  Country: None (occurrence: DE)
  Receive Date: 20170322
  Receipt Date: 20170322
  Transmission Date: 20170429
  Serious: Yes (Other)
  Sender: FDA-Public Use
  Company Number: DE-ABBVIE-16K-062-1670047-00

PATIENT
  Age: 55 Year
  Sex: Female

DRUGS (3)
  1. OXIGESIC [Concomitant]
     Indication: PRODUCT USED FOR UNKNOWN INDICATION
     Dosage: 5-0-10 MG
  2. HUMIRA [Suspect]
     Active Substance: ADALIMUMAB
     Indication: ANKYLOSING SPONDYLITIS
     Route: 058
     Dates: start: 20070610, end: 20160913
  3. SYMBICORT [Concomitant]
     Active Substance: BUDESONIDE\FORMOTEROL FUMARATE DIHYDRATE
     Indication: PRODUCT USED FOR UNKNOWN INDICATION
     Route: 055

REACTIONS (4)
  - Blood urine present [Recovered/Resolved]
  - Urinary retention [Unknown]
  - Procedural pain [Recovered/Resolved]
  - Kidney congestion [Unknown]

NARRATIVE: CASE EVENT DATE: 20160921
